FAERS Safety Report 7602166-9 (Version None)
Quarter: 2011Q3

REPORT INFORMATION
  Report Type: 
  Country: None (occurrence: None)
  Receive Date: 20110711
  Receipt Date: 20110630
  Transmission Date: 20111222
  Serious: Yes (Other)
  Sender: FDA-Public Use
  Company Number: US-BAYER-2011-056881

PATIENT
  Sex: Male

DRUGS (1)
  1. LEVITRA [Suspect]

REACTIONS (2)
  - OPTIC ISCHAEMIC NEUROPATHY [None]
  - VISUAL ACUITY REDUCED [None]
